FAERS Safety Report 9196896 (Version 2)
Quarter: 2013Q2

REPORT INFORMATION
  Report Type: Spontaneous
  Country: US (occurrence: US)
  Receive Date: 20130328
  Receipt Date: 20130520
  Transmission Date: 20140414
  Serious: No
  Sender: FDA-Public Use
  Company Number: US-PFIZER INC-2013096322

PATIENT
  Age: 66 Year
  Sex: Female
  Weight: 42 kg

DRUGS (3)
  1. PREMARIN [Suspect]
     Indication: VULVOVAGINAL DRYNESS
     Dosage: 0.625 MG, 1X/DAY
     Route: 048
     Dates: end: 201303
  2. PREMARIN [Suspect]
     Indication: HOT FLUSH
  3. SIMVASTATIN [Concomitant]
     Dosage: UNK

REACTIONS (5)
  - Vulvovaginal pruritus [Recovering/Resolving]
  - Vulvovaginal erythema [Recovering/Resolving]
  - Vulvovaginal discomfort [Recovering/Resolving]
  - Dermatitis [Recovering/Resolving]
  - Drug ineffective [Recovering/Resolving]
